FAERS Safety Report 6039600-4 (Version None)
Quarter: 2009Q1

REPORT INFORMATION
  Report Type: 
  Country: None (occurrence: None)
  Receive Date: 20090116
  Receipt Date: 20090108
  Transmission Date: 20090719
  Serious: Yes (Other)
  Sender: FDA-Public Use
  Company Number: US-BRISTOL-MYERS SQUIBB COMPANY-14466577

PATIENT

DRUGS (1)
  1. ORENCIA [Suspect]

REACTIONS (1)
  - RESPIRATORY DISORDER [None]
